FAERS Safety Report 6639801-8 (Version None)
Quarter: 2010Q1

REPORT INFORMATION
  Report Type: 
  Country: None (occurrence: None)
  Receive Date: 20100315
  Receipt Date: 20100302
  Transmission Date: 20100710
  Serious: Yes (Death)
  Sender: FDA-Public Use
  Company Number: IT-2010-0035

PATIENT
  Age: 62 Year
  Sex: Male

DRUGS (6)
  1. NAVELBINE [Suspect]
     Indication: NON-SMALL CELL LUNG CANCER STAGE IV
     Dosage: 42 MG IV
     Route: 042
     Dates: start: 20091030, end: 20091211
  2. PRONTO PLAMINE [Suspect]
     Indication: NON-SMALL CELL LUNG CANCER STAGE IV
     Dosage: 100 MG IV
     Route: 042
     Dates: start: 20091030, end: 20091211
  3. ZOFRAN [Concomitant]
  4. ONDANSETRONE MYLAN GENERICS [Concomitant]
  5. LASIX [Concomitant]
  6. SOLDESAM [Concomitant]

REACTIONS (2)
  - PANCYTOPENIA [None]
  - PYREXIA [None]
